FAERS Safety Report 5122041-1 (Version None)
Quarter: 2006Q4

REPORT INFORMATION
  Report Type: 
  Country: None (occurrence: None)
  Receive Date: 20061006
  Receipt Date: 20060822
  Transmission Date: 20070319
  Serious: Yes (Hospitalization, Other)
  Sender: FDA-Public Use
  Company Number: PHEH2006US10773

PATIENT
  Age: 17 Year
  Sex: Male

DRUGS (10)
  1. MAGNESIUM OXIDE [Concomitant]
  2. AMLODIPINE [Concomitant]
  3. PRILOSEC [Concomitant]
  4. ERGOCALCIFEROL [Concomitant]
  5. CALCIUM CARBONATE [Concomitant]
  6. CHROMIUM PICOLINATE [Concomitant]
  7. FLUCONAZOLE [Concomitant]
  8. EXJADE [Suspect]
     Dosage: 2000 MG, QD
     Route: 048
     Dates: start: 20060519, end: 20060608
  9. CYCLOSPORINE [Concomitant]
  10. PENTAMYCETIN [Concomitant]

REACTIONS (12)
  - ABSCESS [None]
  - ABSCESS DRAINAGE [None]
  - BLOOD CREATININE INCREASED [None]
  - BLOOD CULTURE POSITIVE [None]
  - CELLULITIS [None]
  - FUNGAL INFECTION [None]
  - MYOSITIS [None]
  - PYREXIA [None]
  - RENAL FAILURE ACUTE [None]
  - TENDERNESS [None]
  - WOUND COMPLICATION [None]
  - WOUND DEBRIDEMENT [None]
